FAERS Safety Report 14716947 (Version 1)
Quarter: 2018Q2

REPORT INFORMATION
  Report Type: Spontaneous
  Country: US (occurrence: US)
  Receive Date: 20180404
  Receipt Date: 20180404
  Transmission Date: 20180711
  Serious: Yes (Other)
  Sender: FDA-Public Use
  Company Number: US-ELI_LILLY_AND_COMPANY-US201803011299

PATIENT
  Age: 70 Year
  Sex: Male
  Weight: 95 kg

DRUGS (8)
  1. HUMALOG [Suspect]
     Active Substance: INSULIN LISPRO
     Dosage: 14 U, PRN
     Route: 058
  2. JANUVIA [Suspect]
     Active Substance: SITAGLIPTIN PHOSPHATE
     Indication: PRODUCT USED FOR UNKNOWN INDICATION
     Dosage: UNK, UNKNOWN
     Route: 065
  3. LANTUS [Concomitant]
     Active Substance: INSULIN GLARGINE
     Indication: PRODUCT USED FOR UNKNOWN INDICATION
     Dosage: 30 U, DAILY (AT NIGHT)
  4. HUMALOG [Suspect]
     Active Substance: INSULIN LISPRO
     Dosage: 8 U, PRN
     Route: 058
  5. HUMALOG [Suspect]
     Active Substance: INSULIN LISPRO
     Dosage: 10 U, PRN
     Route: 058
  6. HUMALOG [Suspect]
     Active Substance: INSULIN LISPRO
     Indication: TYPE 2 DIABETES MELLITUS
     Dosage: 8 U, UNKNOWN (3 TIMES A DAY)
     Route: 058
     Dates: start: 201711
  7. HUMALOG [Suspect]
     Active Substance: INSULIN LISPRO
     Dosage: 12 U, PRN
     Route: 058
  8. METFORMIN [Suspect]
     Active Substance: METFORMIN HYDROCHLORIDE
     Indication: PRODUCT USED FOR UNKNOWN INDICATION
     Dosage: UNK, UNKNOWN
     Route: 065

REACTIONS (7)
  - Glycosylated haemoglobin increased [Unknown]
  - Blood glucose decreased [Unknown]
  - Presyncope [Unknown]
  - Nausea [Unknown]
  - Weight increased [Unknown]
  - Drug ineffective [Unknown]
  - Blood glucose increased [Unknown]

NARRATIVE: CASE EVENT DATE: 201711
